FAERS Safety Report 8846616 (Version 3)
Quarter: 2015Q3

REPORT INFORMATION
  Report Type: Report from Study
  Country: US (occurrence: US)
  Receive Date: 20121017
  Receipt Date: 20150703
  Transmission Date: 20151125
  Serious: Yes (Death, Hospitalization, Other)
  Sender: FDA-Public Use
  Company Number: US-ROCHE-1137145

PATIENT
  Age: 38 Year
  Sex: Female

DRUGS (34)
  1. XELODA [Suspect]
     Active Substance: CAPECITABINE
     Indication: BREAST CANCER FEMALE
     Route: 065
     Dates: start: 200808
  2. TAXOTERE [Concomitant]
     Active Substance: DOCETAXEL
  3. ACETAMINOPHEN. [Concomitant]
     Active Substance: ACETAMINOPHEN
  4. LORTAB (UNITED STATES) [Concomitant]
  5. HERCEPTIN [Suspect]
     Active Substance: TRASTUZUMAB
     Indication: BREAST CANCER
     Route: 065
  6. AVASTIN [Suspect]
     Active Substance: BEVACIZUMAB
     Indication: BREAST CANCER
     Route: 042
     Dates: start: 20081007, end: 20091007
  7. CISPLATIN. [Concomitant]
     Active Substance: CISPLATIN
  8. ABRAXANE [Concomitant]
     Active Substance: PACLITAXEL
  9. MELATONIN [Concomitant]
     Active Substance: MELATONIN
     Route: 065
  10. DIPHENHYDRAMINE. [Concomitant]
     Active Substance: DIPHENHYDRAMINE
  11. ZOMETA [Concomitant]
     Active Substance: ZOLEDRONIC ACID
  12. NEULASTA [Concomitant]
     Active Substance: PEGFILGRASTIM
     Route: 065
  13. LORAZEPAM. [Concomitant]
     Active Substance: LORAZEPAM
  14. AVASTIN [Suspect]
     Active Substance: BEVACIZUMAB
     Indication: BONE CANCER
  15. PROCHLORPERAZINE. [Concomitant]
     Active Substance: PROCHLORPERAZINE
     Route: 065
  16. DILAUDID [Concomitant]
     Active Substance: HYDROMORPHONE HYDROCHLORIDE
     Route: 065
  17. FILGRASTIM [Concomitant]
     Active Substance: FILGRASTIM
     Route: 065
  18. PACLITAXEL. [Concomitant]
     Active Substance: PACLITAXEL
     Route: 065
  19. OXYCODON [Concomitant]
     Active Substance: OXYCODONE
     Route: 065
  20. GEMZAR [Concomitant]
     Active Substance: GEMCITABINE HYDROCHLORIDE
  21. WARFARIN [Concomitant]
     Active Substance: WARFARIN
     Route: 065
  22. FENTANYL. [Concomitant]
     Active Substance: FENTANYL
     Route: 065
  23. CIPRO [Concomitant]
     Active Substance: CIPROFLOXACIN HYDROCHLORIDE
  24. GEMCITABINE [Concomitant]
     Active Substance: GEMCITABINE\GEMCITABINE HYDROCHLORIDE
  25. GREEN TEA EXTRACT [Concomitant]
     Route: 065
  26. COUMADIN [Concomitant]
     Active Substance: WARFARIN SODIUM
  27. ATIVAN [Concomitant]
     Active Substance: LORAZEPAM
  28. ZOLEDRONIC ACID [Concomitant]
     Active Substance: ZOLEDRONIC ACID
  29. CARBOPLATIN. [Concomitant]
     Active Substance: CARBOPLATIN
  30. DEXAMETHASONE. [Concomitant]
     Active Substance: DEXAMETHASONE
     Route: 065
  31. FUROSEMIDE. [Concomitant]
     Active Substance: FUROSEMIDE
  32. VITAMIN D3 [Concomitant]
     Active Substance: CHOLECALCIFEROL
     Route: 065
  33. PALONOSETRON [Concomitant]
     Active Substance: PALONOSETRON
     Route: 065
  34. MOTRIN [Concomitant]
     Active Substance: IBUPROFEN

REACTIONS (22)
  - Lymphadenopathy [Unknown]
  - Tachycardia [Unknown]
  - Musculoskeletal pain [Unknown]
  - Tearfulness [Unknown]
  - Emotional distress [Unknown]
  - Stomatitis [Unknown]
  - Leukocytosis [Unknown]
  - Pyrexia [Unknown]
  - Back pain [Unknown]
  - Headache [Unknown]
  - Constipation [Unknown]
  - Diarrhoea [Unknown]
  - Discomfort [Unknown]
  - Dysgeusia [Unknown]
  - Disease progression [Fatal]
  - Fatigue [Unknown]
  - Urinary tract infection [Unknown]
  - Oropharyngeal pain [Unknown]
  - Dyspnoea [Unknown]
  - Sepsis [Unknown]
  - Thrombocytopenia [Unknown]
  - Nausea [Unknown]

NARRATIVE: CASE EVENT DATE: 200809
